FAERS Safety Report 15883143 (Version 1)
Quarter: 2019Q1

REPORT INFORMATION
  Report Type: Spontaneous
  Country: US (occurrence: US)
  Receive Date: 20190107
  Receipt Date: 20190107
  Transmission Date: 20190417
  Serious: Yes (Hospitalization)
  Sender: FDA-Public Use
  Company Number: None

PATIENT
  Age: 39 Year
  Sex: Female

DRUGS (10)
  1. HYDROCO/APAP [Concomitant]
     Active Substance: ACETAMINOPHEN\HYDROCODONE
  2. AMITRYPTYLIN [Concomitant]
  3. DULOXETINE. [Concomitant]
     Active Substance: DULOXETINE
  4. OXYBUTYNIN. [Concomitant]
     Active Substance: OXYBUTYNIN CHLORIDE
  5. DIPHEN/ATROP [Concomitant]
     Active Substance: ATROPINE SULFATE\DIPHENOXYLATE
  6. ONDANSETRON [Concomitant]
     Active Substance: ONDANSETRON
  7. GLATIRAMER 40MG/ML PFS [Suspect]
     Active Substance: GLATIRAMER
     Indication: MULTIPLE SCLEROSIS
     Route: 058
     Dates: start: 20181023
  8. CYCLOBENZAPR [Concomitant]
     Active Substance: CYCLOBENZAPRINE
  9. ESTRADIOL. [Concomitant]
     Active Substance: ESTRADIOL
  10. MEXILETINE [Concomitant]
     Active Substance: MEXILETINE

REACTIONS (4)
  - Amnesia [None]
  - Multiple sclerosis relapse [None]
  - Gait inability [None]
  - Pain in extremity [None]

NARRATIVE: CASE EVENT DATE: 20181123
